FAERS Safety Report 6698875-9 (Version None)
Quarter: 2010Q2

REPORT INFORMATION
  Report Type: 
  Country: None (occurrence: None)
  Receive Date: 20100427
  Receipt Date: 20100423
  Transmission Date: 20101027
  Serious: Yes (Other)
  Sender: FDA-Public Use
  Company Number: US-MERCK-1002USA01932

PATIENT
  Age: 48 Year
  Sex: Female

DRUGS (3)
  1. FOSAMAX [Suspect]
     Indication: OSTEOPOROSIS
     Route: 048
  2. PREDNISONE [Suspect]
     Indication: RHEUMATOID ARTHRITIS
     Route: 065
  3. ESTRADIOL [Suspect]
     Indication: ATROPHIC VULVOVAGINITIS
     Route: 065

REACTIONS (1)
  - TIBIA FRACTURE [None]
